FAERS Safety Report 21033955 (Version 1)
Quarter: 2022Q3

REPORT INFORMATION
  Report Type: Spontaneous
  Country: US (occurrence: None)
  Receive Date: 20220701
  Receipt Date: 20220701
  Transmission Date: 20221027
  Serious: No
  Sender: FDA-Public Use
  Company Number: None

PATIENT
  Age: 44 Year
  Sex: Female

DRUGS (1)
  1. PAXLOVID [Suspect]
     Active Substance: NIRMATRELVIR\RITONAVIR
     Indication: COVID-19 treatment

REACTIONS (5)
  - Product dispensing error [None]
  - Incorrect dose administered [None]
  - Incorrect product dosage form administered [None]
  - Transcription medication error [None]
  - Product prescribing error [None]

NARRATIVE: CASE EVENT DATE: 20220628
